FAERS Safety Report 24183340 (Version 1)
Quarter: 2024Q3

REPORT INFORMATION
  Report Type: Report from Study
  Country: CA (occurrence: CA)
  Receive Date: 20240807
  Receipt Date: 20240807
  Transmission Date: 20241017
  Serious: Yes (Other)
  Sender: JOHNSON AND JOHNSON
  Company Number: CA-JNJFOC-20240809671

PATIENT
  Age: 50 Year
  Sex: Male

DRUGS (1)
  1. SIMPONI [Suspect]
     Active Substance: GOLIMUMAB
     Indication: Ankylosing spondylitis
     Route: 058
     Dates: start: 20181220

REACTIONS (3)
  - Musculoskeletal foreign body [Unknown]
  - Arthritis infective [Recovering/Resolving]
  - Infected cyst [Unknown]

NARRATIVE: CASE EVENT DATE: 20240731
